FAERS Safety Report 6389782-X (Version None)
Quarter: 2009Q4

REPORT INFORMATION
  Report Type: 
  Country: None (occurrence: None)
  Receive Date: 20091002
  Receipt Date: 20091002
  Transmission Date: 20100525
  Serious: Yes (Other)
  Sender: FDA-Public Use
  Company Number: None

PATIENT
  Age: 62 Year
  Sex: Female
  Weight: 76.2043 kg

DRUGS (1)
  1. RANITIDINE [Suspect]
     Indication: ULCER
     Dosage: 2 TSP BID PO
     Route: 048
     Dates: start: 20081230, end: 20090315

REACTIONS (3)
  - DRUG INEFFECTIVE [None]
  - PRODUCT CONTAMINATION [None]
  - PRODUCT SUBSTITUTION ISSUE [None]
